FAERS Safety Report 15160374 (Version 2)
Quarter: 2018Q3

REPORT INFORMATION
  Report Type: Spontaneous
  Country: DE (occurrence: DE)
  Receive Date: 20180718
  Receipt Date: 20180924
  Transmission Date: 20181010
  Serious: Yes (Hospitalization, Other)
  Sender: FDA-Public Use
  Company Number: DE-BRISTOL-MYERS SQUIBB COMPANY-BMS-2018-065796

PATIENT
  Age: 73 Year
  Sex: Female
  Weight: 76 kg

DRUGS (1)
  1. OPDIVO [Suspect]
     Active Substance: NIVOLUMAB
     Indication: BRONCHIAL CARCINOMA
     Dosage: 240 MG, UNK
     Route: 065
     Dates: start: 20170614, end: 20180509

REACTIONS (20)
  - Gait disturbance [Recovering/Resolving]
  - Asthenia [Recovering/Resolving]
  - Depression [Unknown]
  - General physical health deterioration [Unknown]
  - Fatigue [Recovering/Resolving]
  - Hot flush [Unknown]
  - Skin discolouration [Unknown]
  - Chronic kidney disease [Unknown]
  - Diarrhoea [Unknown]
  - Dehydration [Unknown]
  - Adrenal insufficiency [Recovering/Resolving]
  - Constipation [Unknown]
  - Leukocytosis [Unknown]
  - Musculoskeletal stiffness [Recovering/Resolving]
  - Pain in extremity [Recovering/Resolving]
  - Immune system disorder [Unknown]
  - Stress [Unknown]
  - Immobile [Recovering/Resolving]
  - Pain [Unknown]
  - Malignant neoplasm progression [Unknown]

NARRATIVE: CASE EVENT DATE: 201805
